FAERS Safety Report 10018815 (Version 3)
Quarter: 2014Q3

REPORT INFORMATION
  Report Type: Spontaneous
  Country: CA (occurrence: CA)
  Receive Date: 20140318
  Receipt Date: 20140912
  Transmission Date: 20150326
  Serious: Yes (Hospitalization)
  Sender: FDA-Public Use
  Company Number: CA-GLAXOSMITHKLINE-A1060885A

PATIENT
  Age: 40 Year
  Sex: Female
  Weight: 97.3 kg

DRUGS (6)
  1. BENLYSTA [Suspect]
     Active Substance: BELIMUMAB
     Indication: SYSTEMIC LUPUS ERYTHEMATOSUS
     Dosage: 1000MG SEE DOSAGE TEXT
     Route: 042
     Dates: start: 20140123
  2. ANTIBIOTICS [Concomitant]
     Active Substance: UNSPECIFIED INGREDIENT
  3. CELLCEPT [Concomitant]
     Active Substance: MYCOPHENOLATE MOFETIL\MYCOPHENOLATE MOFETIL HYDROCHLORIDE
     Route: 048
  4. PREDNISONE. [Concomitant]
     Active Substance: PREDNISONE
     Dosage: 40MG PER DAY
  5. HYDROXYCHLOROQUINE [Concomitant]
     Active Substance: HYDROXYCHLOROQUINE
  6. DIPHENHYDRAMINE [Concomitant]
     Active Substance: DIPHENHYDRAMINE
     Route: 048

REACTIONS (11)
  - Malaise [Recovering/Resolving]
  - Catheterisation venous [Unknown]
  - Infusion site erythema [Recovering/Resolving]
  - Sepsis [Recovered/Resolved]
  - Adverse event [Unknown]
  - Infusion site pruritus [Recovering/Resolving]
  - Infusion site swelling [Recovering/Resolving]
  - Dyspnoea [Recovered/Resolved]
  - Pneumonia [Recovered/Resolved]
  - Breath sounds abnormal [Unknown]
  - Surgery [Unknown]

NARRATIVE: CASE EVENT DATE: 20140319
